FAERS Safety Report 9153031 (Version 2)
Quarter: 2013Q2

REPORT INFORMATION
  Report Type: Spontaneous
  Country: US (occurrence: US)
  Receive Date: 20130310
  Receipt Date: 20130411
  Transmission Date: 20140414
  Serious: Yes (Hospitalization)
  Sender: FDA-Public Use
  Company Number: US-MERCK-1303USA002184

PATIENT
  Sex: Female

DRUGS (2)
  1. JANUMET [Suspect]
     Route: 048
  2. JANUVIA [Suspect]
     Route: 048

REACTIONS (4)
  - Fungal infection [Unknown]
  - Syncope [Unknown]
  - Blood glucose increased [Unknown]
  - International normalised ratio abnormal [Unknown]
